FAERS Safety Report 11314568 (Version 3)
Quarter: 2016Q1

REPORT INFORMATION
  Report Type: Report from Study
  Country: JP (occurrence: JP)
  Receive Date: 20150727
  Receipt Date: 20160216
  Transmission Date: 20160525
  Serious: Yes (Hospitalization)
  Sender: FDA-Public Use
  Company Number: JP-EISAI MEDICAL RESEARCH-EC-2015-008824

PATIENT
  Age: 64 Year
  Sex: Female

DRUGS (14)
  1. ADALAT [Concomitant]
     Active Substance: NIFEDIPINE
  2. LEVOTHYROXINE SODIUM HYDRATE [Concomitant]
  3. CELECOX [Concomitant]
     Active Substance: CELECOXIB
  4. BLOPRESS [Concomitant]
     Active Substance: CANDESARTAN CILEXETIL
  5. MAGNESIUM OXIDE. [Concomitant]
     Active Substance: MAGNESIUM OXIDE
  6. OPSO [Concomitant]
     Active Substance: MORPHINE HYDROCHLORIDE
  7. PROTECADIN [Concomitant]
     Active Substance: LAFUTIDINE
  8. AMLODIPINE BESILATE [Concomitant]
     Active Substance: AMLODIPINE BESYLATE
  9. LENVIMA [Suspect]
     Active Substance: LENVATINIB
     Indication: THYROID CANCER METASTATIC
     Route: 048
     Dates: start: 20150703, end: 20150717
  10. LENVIMA [Suspect]
     Active Substance: LENVATINIB
     Route: 048
     Dates: start: 20150807, end: 20150827
  11. TRAMAL OD [Concomitant]
     Active Substance: TRAMADOL
  12. LENVIMA [Suspect]
     Active Substance: LENVATINIB
     Route: 048
     Dates: start: 20150904
  13. LENVIMA [Suspect]
     Active Substance: LENVATINIB
     Route: 048
     Dates: start: 20150723, end: 20150730
  14. ADALAT CC [Concomitant]
     Active Substance: NIFEDIPINE

REACTIONS (2)
  - Platelet count decreased [Recovered/Resolved]
  - Hypertension [Recovering/Resolving]

NARRATIVE: CASE EVENT DATE: 20150704
